FAERS Safety Report 24330387 (Version 4)
Quarter: 2024Q4

REPORT INFORMATION
  Report Type: Spontaneous
  Country: CA (occurrence: CA)
  Receive Date: 20240918
  Receipt Date: 20241217
  Transmission Date: 20250115
  Serious: Yes (Other)
  Sender: CELLTRION
  Company Number: CA-PFIZER INC-202400245249

PATIENT

DRUGS (5)
  1. INFLECTRA [Suspect]
     Active Substance: INFLIXIMAB-DYYB
     Indication: Ankylosing spondylitis
     Dosage: 410 MG, WEEK 0, 2, 6 AND Q 6 WEEKS
     Route: 042
     Dates: start: 20230125
  2. INFLECTRA [Suspect]
     Active Substance: INFLIXIMAB-DYYB
     Dosage: 410 MG, WEEK 0, 2, 6 AND Q 6 WEEKS
     Route: 042
     Dates: start: 20240715
  3. INFLECTRA [Suspect]
     Active Substance: INFLIXIMAB-DYYB
     Dosage: 410 MG,AFTER 7 WEEKS AND 5 DAYS(W0, 2, 6 AND Q6 WEEKS)
     Route: 042
     Dates: start: 20240913
  4. INFLECTRA [Suspect]
     Active Substance: INFLIXIMAB-DYYB
     Dosage: 410 MG, AFTER 8 WEEKS (PRESCRIBED TREATMENT IS EVERY 6 WEEKS) (W0, 2, 6 AND Q6 WEEKS)
     Route: 042
     Dates: start: 20241107
  5. INFLECTRA [Suspect]
     Active Substance: INFLIXIMAB-DYYB
     Dosage: 410 MG, 4 WEEKS AND 1 DAY AFTER LAST TREATMENT (EVERY 6 WEEK/W0, 2, 6 AND Q6 WEEKS)
     Route: 042
     Dates: start: 20241206

REACTIONS (4)
  - Uveitis [Unknown]
  - Cellulitis [Unknown]
  - Arthropod bite [Unknown]
  - Inappropriate schedule of product administration [Unknown]

NARRATIVE: CASE EVENT DATE: 20240101
